FAERS Safety Report 7796653-0 (Version None)
Quarter: 2011Q4

REPORT INFORMATION
  Report Type: 
  Country: None (occurrence: None)
  Receive Date: 20111005
  Receipt Date: 20110923
  Transmission Date: 20120403
  Serious: Yes (Hospitalization)
  Sender: FDA-Public Use
  Company Number: US-BAYER-2011-012008

PATIENT
  Age: 31 Year
  Sex: Female
  Weight: 126.98 kg

DRUGS (4)
  1. YAZ [Suspect]
     Indication: MENORRHAGIA
  2. PROVERA [Concomitant]
     Dosage: 10 MG, Q4HR
     Route: 048
     Dates: start: 20070101, end: 20090217
  3. YAZ [Suspect]
     Indication: CONTRACEPTION
     Dosage: UNK
     Dates: start: 20081201, end: 20090302
  4. LIPITOR [Concomitant]
     Indication: HYPERLIPIDAEMIA

REACTIONS (14)
  - TACHYPNOEA [None]
  - DYSPNOEA [None]
  - DEEP VEIN THROMBOSIS [None]
  - PALPITATIONS [None]
  - INSOMNIA [None]
  - FEAR [None]
  - RESPIRATORY ALKALOSIS [None]
  - PAIN IN EXTREMITY [None]
  - FATIGUE [None]
  - PULMONARY EMBOLISM [None]
  - PAIN [None]
  - INJURY [None]
  - ANXIETY [None]
  - EMOTIONAL DISTRESS [None]
